FAERS Safety Report 6147717-9 (Version None)
Quarter: 2009Q2

REPORT INFORMATION
  Report Type: 
  Country: None (occurrence: None)
  Receive Date: 20090408
  Receipt Date: 20090331
  Transmission Date: 20091009
  Serious: Yes (Death, Other)
  Sender: FDA-Public Use
  Company Number: US-NOVOPROD-285330

PATIENT
  Age: 7 Year
  Sex: Female

DRUGS (1)
  1. NOVOSEVEN [Suspect]
     Indication: IDIOPATHIC THROMBOCYTOPENIC PURPURA
     Dosage: 90 UG/KG 2 DOSES

REACTIONS (2)
  - CEREBRAL INFARCTION [None]
  - INTRACRANIAL VENOUS SINUS THROMBOSIS [None]
